FAERS Safety Report 5022173-2 (Version None)
Quarter: 2006Q2

REPORT INFORMATION
  Report Type: 
  Country: None (occurrence: None)
  Receive Date: 20060609
  Receipt Date: 20060602
  Transmission Date: 20061013
  Serious: Yes (Other)
  Sender: FDA-Public Use
  Company Number: 2006UW10884

PATIENT
  Age: 44 Year
  Sex: Female

DRUGS (1)
  1. NAROPIN [Suspect]
     Indication: ANAESTHESIA
     Route: 042
     Dates: start: 20060501, end: 20060501

REACTIONS (3)
  - DRUG ADMINISTRATION ERROR [None]
  - OVERDOSE [None]
  - TINNITUS [None]
